FAERS Safety Report 10012638 (Version 1)
Quarter: 2014Q1

REPORT INFORMATION
  Report Type: Report from Study
  Country: ES (occurrence: ES)
  Receive Date: 20140314
  Receipt Date: 20140314
  Transmission Date: 20141002
  Serious: Yes (Other)
  Sender: FDA-Public Use
  Company Number: ES-VERTEX PHARMACEUTICALS INC-2014-001251

PATIENT
  Sex: 0

DRUGS (6)
  1. TELAPREVIR [Suspect]
     Indication: HEPATITIS C
  2. INTELENCE [Suspect]
     Indication: HIV INFECTION
     Route: 065
  3. PEGYLATED INTERFERON [Suspect]
     Indication: HEPATITIS C
     Dosage: UNK
     Route: 065
  4. RIBAVIRIN [Suspect]
     Indication: HEPATITIS C
     Dosage: UNK
     Route: 065
  5. RIBAVIRIN [Suspect]
     Dosage: UNK
     Route: 065
  6. RIBAVIRIN [Suspect]
     Dosage: UNK
     Route: 065

REACTIONS (3)
  - Haematotoxicity [Unknown]
  - Platelet count decreased [Unknown]
  - Anaemia [Unknown]
